FAERS Safety Report 20659866 (Version 2)
Quarter: 2022Q4

REPORT INFORMATION
  Report Type: Spontaneous
  Country: CA (occurrence: CA)
  Receive Date: 20220331
  Receipt Date: 20221219
  Transmission Date: 20230113
  Serious: Yes (Other)
  Sender: FDA-Public Use
  Company Number: CA-TEVA-2022-CA-2021670

PATIENT
  Age: 35 Week
  Weight: 2 kg

DRUGS (6)
  1. CISPLATIN [Suspect]
     Active Substance: CISPLATIN
     Indication: Foetal exposure during pregnancy
     Route: 064
  2. CISPLATIN [Suspect]
     Active Substance: CISPLATIN
     Indication: Chemotherapy
     Dosage: CYCLICAL
     Route: 064
  3. CISPLATIN [Suspect]
     Active Substance: CISPLATIN
     Dosage: CYCLICAL
     Route: 064
  4. ETOPOSIDE [Suspect]
     Active Substance: ETOPOSIDE
     Indication: Foetal exposure during pregnancy
     Route: 064
  5. ETOPOSIDE [Suspect]
     Active Substance: ETOPOSIDE
     Indication: Chemotherapy
     Dosage: CYCLICAL
     Route: 064
  6. ETOPOSIDE [Suspect]
     Active Substance: ETOPOSIDE
     Dosage: CYCLICAL
     Route: 064

REACTIONS (4)
  - Foetal exposure during pregnancy [Unknown]
  - Foetal growth restriction [Unknown]
  - Low birth weight baby [Unknown]
  - Premature baby [Unknown]
